FAERS Safety Report 8604063-9 (Version None)
Quarter: 2012Q3

REPORT INFORMATION
  Report Type: 
  Country: None (occurrence: None)
  Receive Date: 20120820
  Receipt Date: 20120810
  Transmission Date: 20120928
  Serious: No
  Sender: FDA-Public Use
  Company Number: US-BIOGENIDEC-2012BI031114

PATIENT
  Sex: Male

DRUGS (1)
  1. TYSABRI [Suspect]
     Indication: MULTIPLE SCLEROSIS
     Route: 042
     Dates: start: 20081103, end: 20120607

REACTIONS (4)
  - FUNCTIONAL GASTROINTESTINAL DISORDER [None]
  - HYPOAESTHESIA [None]
  - NEURALGIA [None]
  - BAND SENSATION [None]
